FAERS Safety Report 5610729-5 (Version None)
Quarter: 2008Q1

REPORT INFORMATION
  Report Type: 
  Country: None (occurrence: None)
  Receive Date: 20080201
  Receipt Date: 20080128
  Transmission Date: 20080703
  Serious: Yes (Other)
  Sender: FDA-Public Use
  Company Number: PHNU2008DE00735

PATIENT
  Age: 54 Year
  Sex: Female

DRUGS (2)
  1. TRILEPTAL [Suspect]
     Indication: EPILEPSY
     Dosage: 300 MG, QD
     Route: 048
     Dates: start: 20080123, end: 20080124
  2. CYMBALTA [Concomitant]
     Dates: start: 20070701, end: 20080124

REACTIONS (5)
  - DIZZINESS [None]
  - LONG QT SYNDROME [None]
  - TACHYCARDIA [None]
  - TORSADE DE POINTES [None]
  - VENTRICULAR FLUTTER [None]
